FAERS Safety Report 4899897-0 (Version None)
Quarter: 2006Q1

REPORT INFORMATION
  Report Type: 
  Country: None (occurrence: None)
  Receive Date: 20060118
  Receipt Date: 20050927
  Transmission Date: 20060701
  Serious: No
  Sender: FDA-Public Use
  Company Number: 2005001891

PATIENT
  Age: 77 Year
  Sex: Female

DRUGS (3)
  1. TARCEVA [Suspect]
     Dosage: (QD), ORAL
     Route: 048
  2. PHENOBARBITAL TAB [Concomitant]
  3. DILANTIN [Concomitant]

REACTIONS (1)
  - ARTHRITIS [None]
